FAERS Safety Report 20728008 (Version 3)
Quarter: 2023Q1

REPORT INFORMATION
  Report Type: Spontaneous
  Country: ES (occurrence: ES)
  Receive Date: 20220419
  Receipt Date: 20230113
  Transmission Date: 20230417
  Serious: Yes (Hospitalization)
  Sender: FDA-Public Use
  Company Number: None

PATIENT
  Sex: Male

DRUGS (43)
  1. OLANZAPINE [Suspect]
     Active Substance: OLANZAPINE
     Indication: Schizoaffective disorder
     Dosage: 20 MILLIGRAM PER DAY
     Route: 048
     Dates: start: 201610, end: 201702
  2. OLANZAPINE [Suspect]
     Active Substance: OLANZAPINE
     Indication: Schizotypal personality disorder
     Dosage: 20 MILLIGRAM PER DAY
     Route: 065
     Dates: start: 201705, end: 201712
  3. CITALOPRAM [Suspect]
     Active Substance: CITALOPRAM HYDROBROMIDE
     Indication: Schizoaffective disorder
     Dosage: UNK
     Route: 065
     Dates: start: 201702, end: 201705
  4. CITALOPRAM [Suspect]
     Active Substance: CITALOPRAM HYDROBROMIDE
     Indication: Schizotypal personality disorder
  5. HALOPERIDOL [Suspect]
     Active Substance: HALOPERIDOL
     Indication: Schizoaffective disorder
     Dosage: UNK
     Route: 065
     Dates: start: 201705, end: 201712
  6. HALOPERIDOL [Suspect]
     Active Substance: HALOPERIDOL
     Indication: Mania
  7. AMISULPRIDE [Suspect]
     Active Substance: AMISULPRIDE
     Indication: Schizotypal personality disorder
     Dosage: 400 MILLIGRAM PER DAY
     Route: 065
     Dates: start: 1994, end: 201512
  8. AMISULPRIDE [Suspect]
     Active Substance: AMISULPRIDE
     Indication: Schizoaffective disorder
     Dosage: 800 MILLIGRAM PER DAY
     Route: 065
     Dates: start: 201512, end: 201604
  9. AMISULPRIDE [Suspect]
     Active Substance: AMISULPRIDE
     Dosage: 600 MILLIGRAM PER DAY
     Route: 065
     Dates: start: 201604, end: 201606
  10. AMISULPRIDE [Suspect]
     Active Substance: AMISULPRIDE
     Dosage: 400 MILLIGRAM PER DAY
     Route: 065
     Dates: start: 201606, end: 201702
  11. AMISULPRIDE [Suspect]
     Active Substance: AMISULPRIDE
     Dosage: 400 MILLIGRAM PER DAY
     Route: 065
     Dates: start: 201610, end: 201702
  12. VALPROATE [Suspect]
     Active Substance: VALPROIC ACID
     Indication: Schizotypal personality disorder
     Dosage: 500 MILLIGRAM PER DAY
     Route: 065
     Dates: start: 201606, end: 201609
  13. VALPROATE [Suspect]
     Active Substance: VALPROIC ACID
     Indication: Schizoaffective disorder
     Dosage: 1000 MILLIGRAM PER DAY
     Route: 065
     Dates: start: 201610, end: 201702
  14. LEVOMEPROMAZINE [Suspect]
     Active Substance: LEVOMEPROMAZINE
     Indication: Schizoaffective disorder
     Dosage: 100 MILLIGRAM PER DAY
     Route: 065
     Dates: start: 201610, end: 201702
  15. LEVOMEPROMAZINE [Suspect]
     Active Substance: LEVOMEPROMAZINE
     Indication: Schizotypal personality disorder
  16. LORMETAZEPAM [Suspect]
     Active Substance: LORMETAZEPAM
     Indication: Schizoaffective disorder
     Dosage: UNK
     Route: 065
     Dates: start: 201604, end: 2016
  17. LORMETAZEPAM [Suspect]
     Active Substance: LORMETAZEPAM
     Indication: Schizotypal personality disorder
     Dosage: UNK
     Route: 065
     Dates: start: 201702, end: 201705
  18. LORMETAZEPAM [Suspect]
     Active Substance: LORMETAZEPAM
     Dosage: UNK
     Route: 065
     Dates: start: 201705, end: 201712
  19. LORMETAZEPAM [Suspect]
     Active Substance: LORMETAZEPAM
     Dosage: UNK
     Route: 065
     Dates: start: 201712
  20. CLONAZEPAM [Suspect]
     Active Substance: CLONAZEPAM
     Indication: Schizoaffective disorder
     Dosage: UNK
     Route: 065
     Dates: start: 201702, end: 201705
  21. CLONAZEPAM [Suspect]
     Active Substance: CLONAZEPAM
     Indication: Schizotypal personality disorder
     Dosage: UNK
     Route: 065
     Dates: start: 201705, end: 201712
  22. CLONAZEPAM [Suspect]
     Active Substance: CLONAZEPAM
     Dosage: UNK
     Route: 065
  23. CLONAZEPAM [Suspect]
     Active Substance: CLONAZEPAM
     Dosage: UNK
     Route: 065
     Dates: start: 201712
  24. LITHIUM [Suspect]
     Active Substance: LITHIUM
     Indication: Schizoaffective disorder
     Dosage: UNK
     Route: 065
  25. LITHIUM [Suspect]
     Active Substance: LITHIUM
     Indication: Suicide attempt
     Dosage: 800 MILLIGRAM PER DAY
     Route: 065
     Dates: start: 199401, end: 201604
  26. LITHIUM [Suspect]
     Active Substance: LITHIUM
     Indication: Schizotypal personality disorder
     Dosage: UNK
     Route: 065
     Dates: start: 20160118, end: 20160613
  27. LITHIUM [Suspect]
     Active Substance: LITHIUM
     Dosage: 600 MILLIGRAM PER DAY
     Route: 065
     Dates: start: 201702, end: 201705
  28. LITHIUM [Suspect]
     Active Substance: LITHIUM
     Dosage: 1200 MILLIGRAM PER DAY
     Route: 065
     Dates: start: 201712
  29. CLOBAZAM [Suspect]
     Active Substance: CLOBAZAM
     Indication: Schizotypal personality disorder
     Dosage: UNK
     Route: 065
  30. CLOBAZAM [Suspect]
     Active Substance: CLOBAZAM
     Indication: Schizoaffective disorder
  31. ESCITALOPRAM [Suspect]
     Active Substance: ESCITALOPRAM OXALATE
     Indication: Schizoaffective disorder
     Dosage: 15 MILLIGRAM PER DAY
     Route: 065
     Dates: start: 1994, end: 201512
  32. ESCITALOPRAM [Suspect]
     Active Substance: ESCITALOPRAM OXALATE
     Indication: Schizotypal personality disorder
     Dosage: 15 MILLIGRAM PER DAY
     Route: 065
     Dates: start: 201606, end: 201609
  33. TRAZODONE [Suspect]
     Active Substance: TRAZODONE HYDROCHLORIDE
     Indication: Schizoaffective disorder
     Dosage: 200 MILLIGRAM PER DAY
     Route: 065
     Dates: start: 1994, end: 201512
  34. TRAZODONE [Suspect]
     Active Substance: TRAZODONE HYDROCHLORIDE
     Indication: Schizotypal personality disorder
     Dosage: 200 MILLIGRAM PE DAY
     Route: 065
     Dates: start: 201606, end: 201609
  35. ARIPIPRAZOLE [Suspect]
     Active Substance: ARIPIPRAZOLE
     Indication: Schizoaffective disorder
     Dosage: 10 MILLIGRAM PER DAY
     Route: 065
     Dates: start: 201702, end: 201705
  36. ARIPIPRAZOLE [Suspect]
     Active Substance: ARIPIPRAZOLE
     Indication: Schizotypal personality disorder
     Dosage: 400 MILLIGRAM EVERY 28 DAYS
     Route: 065
     Dates: start: 201712
  37. LORAZEPAM [Concomitant]
     Active Substance: LORAZEPAM
     Indication: Schizoaffective disorder
     Dosage: UNK
     Route: 065
     Dates: start: 201604, end: 2016
  38. LORAZEPAM [Concomitant]
     Active Substance: LORAZEPAM
     Indication: Schizotypal personality disorder
     Dosage: UNK
     Route: 065
     Dates: start: 201606, end: 201702
  39. LORAZEPAM [Concomitant]
     Active Substance: LORAZEPAM
     Dosage: UNK
     Route: 065
     Dates: start: 201705, end: 201712
  40. QUETIAPINE [Concomitant]
     Active Substance: QUETIAPINE
     Indication: Schizoaffective disorder
     Dosage: 100 MILLIGRAM PER DAY
     Route: 065
     Dates: start: 201604, end: 201606
  41. QUETIAPINE [Concomitant]
     Active Substance: QUETIAPINE
     Indication: Schizotypal personality disorder
  42. FLUOXETINE [Concomitant]
     Active Substance: FLUOXETINE HYDROCHLORIDE
     Indication: Schizoaffective disorder
     Dosage: 20 MILLIGRAM PER DAY
     Route: 065
     Dates: start: 201604, end: 201606
  43. FLUOXETINE [Concomitant]
     Active Substance: FLUOXETINE HYDROCHLORIDE
     Indication: Schizotypal personality disorder

REACTIONS (4)
  - Abnormal behaviour [Unknown]
  - Sedation [Unknown]
  - Extrapyramidal disorder [Unknown]
  - Drug ineffective [Unknown]
